FAERS Safety Report 17389235 (Version 2)
Quarter: 2020Q1

REPORT INFORMATION
  Report Type: Spontaneous
  Country: US (occurrence: US)
  Receive Date: 20200207
  Receipt Date: 20200303
  Transmission Date: 20200409
  Serious: No
  Sender: FDA-Public Use
  Company Number: US-ASTRAZENECA-2020SE08539

PATIENT
  Age: 26213 Day
  Sex: Male
  Weight: 98.4 kg

DRUGS (2)
  1. BYDUREON BCISE [Suspect]
     Active Substance: EXENATIDE
     Indication: BLOOD GLUCOSE INCREASED
     Route: 058
     Dates: start: 20200113
  2. BYDUREON BCISE [Suspect]
     Active Substance: EXENATIDE
     Indication: TYPE 2 DIABETES MELLITUS
     Route: 058
     Dates: start: 20200113

REACTIONS (6)
  - Intentional device misuse [Recovered/Resolved]
  - Injection site discolouration [Recovered/Resolved]
  - Wrong technique in device usage process [Recovered/Resolved]
  - Device issue [Recovered/Resolved]
  - Injection site haemorrhage [Recovered/Resolved]
  - Drug dose omission by device [Recovered/Resolved]

NARRATIVE: CASE EVENT DATE: 20200113
